FAERS Safety Report 13624117 (Version 2)
Quarter: 2017Q3

REPORT INFORMATION
  Report Type: Spontaneous
  Country: US (occurrence: US)
  Receive Date: 20170607
  Receipt Date: 20170809
  Transmission Date: 20171127
  Serious: Yes (Other)
  Sender: FDA-Public Use
  Company Number: US-MUNDIPHARMA DS AND PHARMACOVIGILANCE-USA-2017-0136214

PATIENT
  Age: 42 Year
  Sex: Female

DRUGS (1)
  1. BUTRANS [Suspect]
     Active Substance: BUPRENORPHINE
     Indication: PAIN
     Dosage: 5 MCG/HR, WEEKLY
     Route: 062
     Dates: start: 20170124, end: 20170127

REACTIONS (8)
  - Agitation [Unknown]
  - Unevaluable event [Unknown]
  - Hallucination [Recovered/Resolved]
  - Obsessive-compulsive symptom [Unknown]
  - Rash [Not Recovered/Not Resolved]
  - Euphoric mood [Recovered/Resolved]
  - Dyspnoea [Unknown]
  - Nightmare [Recovered/Resolved]

NARRATIVE: CASE EVENT DATE: 201701
